FAERS Safety Report 22044568 (Version 1)
Quarter: 2023Q1

REPORT INFORMATION
  Report Type: Spontaneous
  Country: GB (occurrence: GB)
  Receive Date: 20230228
  Receipt Date: 20230228
  Transmission Date: 20230418
  Serious: Yes (Hospitalization, Other)
  Sender: FDA-Public Use
  Company Number: GB-MYLANLABS-2023M1020901

PATIENT
  Sex: Male

DRUGS (1)
  1. CLOZARIL [Suspect]
     Active Substance: CLOZAPINE
     Indication: Schizophrenia
     Dosage: UNK (THE PATIENT WAS USING FROM 20 YEARS)
     Route: 048

REACTIONS (3)
  - Hospitalisation [Unknown]
  - Thinking abnormal [Unknown]
  - Off label use [Unknown]
